FAERS Safety Report 4964470-2 (Version None)
Quarter: 2006Q1

REPORT INFORMATION
  Report Type: 
  Country: None (occurrence: None)
  Receive Date: 20060331
  Receipt Date: 20060314
  Transmission Date: 20060701
  Serious: Yes (Death, Hospitalization)
  Sender: FDA-Public Use
  Company Number: US200603003129

PATIENT
  Age: 52 Year
  Sex: Female
  Weight: 88.4 kg

DRUGS (3)
  1. GEMCITABINE HYDROCHLORIDE [Suspect]
     Indication: METASTATIC NEOPLASM
     Dosage: 1000 MG/M2,
     Route: 042
     Dates: start: 20050215
  2. CPT-11 (CPT-11) [Suspect]
     Indication: METASTATIC NEOPLASM
     Dosage: 100 MG/M2, OTHER, INTRAVENOUS
     Route: 042
     Dates: start: 20060215
  3. TINENTIN                     (CALVULANIC ACID, TICARCILLIN DISODIUM) [Concomitant]

REACTIONS (11)
  - ABDOMINAL SEPSIS [None]
  - ACUTE PRERENAL FAILURE [None]
  - ATELECTASIS [None]
  - CARDIAC ARREST [None]
  - CONSTIPATION [None]
  - DEHYDRATION [None]
  - DYSPNOEA [None]
  - INTESTINAL PERFORATION [None]
  - RENAL FAILURE ACUTE [None]
  - TUMOUR NECROSIS [None]
  - UROSEPSIS [None]
